FAERS Safety Report 9542660 (Version 1)
Quarter: 2013Q3

REPORT INFORMATION
  Report Type: Spontaneous
  Country: JP (occurrence: JP)
  Receive Date: 20130923
  Receipt Date: 20130923
  Transmission Date: 20140515
  Serious: Yes (Other)
  Sender: FDA-Public Use
  Company Number: JP-PFIZER INC-2013271398

PATIENT
  Sex: 0

DRUGS (2)
  1. HALCION [Suspect]
     Dosage: 0.25 MG, 1X/DAY
     Route: 048
  2. CLARITH [Suspect]
     Indication: INFECTION
     Dosage: 400 MG, 1X/DAY
     Route: 048

REACTIONS (1)
  - Delirium [Unknown]
